FAERS Safety Report 5293125-2 (Version None)
Quarter: 2007Q2

REPORT INFORMATION
  Report Type: 
  Country: None (occurrence: None)
  Receive Date: 20070411
  Receipt Date: 20070403
  Transmission Date: 20071010
  Serious: Yes (Life-Threatening, Disabling)
  Sender: FDA-Public Use
  Company Number: US-BAYER-200613453BWH

PATIENT
  Age: 70 Year
  Sex: Female

DRUGS (7)
  1. NEXAVAR [Suspect]
     Indication: METASTATIC RENAL CELL CARCINOMA
     Dosage: TOTAL DAILY DOSE: 800 MG  UNIT DOSE: 200 MG
     Route: 048
     Dates: start: 20060416, end: 20060503
  2. NEXAVAR [Suspect]
     Dosage: TOTAL DAILY DOSE: 400 MG  UNIT DOSE: 200 MG
     Route: 048
     Dates: start: 20060503, end: 20060626
  3. NEXAVAR [Suspect]
     Route: 048
  4. NEXAVAR [Suspect]
     Dosage: TOTAL DAILY DOSE: 200 MG  UNIT DOSE: 200 MG
     Route: 048
     Dates: start: 20060716, end: 20061210
  5. PINDOLOL [Concomitant]
     Indication: HYPERTENSION
  6. PROTONIX [Concomitant]
  7. THALIDOMIDE THERAPY [Concomitant]
     Dates: start: 20050801, end: 20060301

REACTIONS (20)
  - ALOPECIA [None]
  - ANGIOEDEMA [None]
  - BLISTER [None]
  - CATARACT [None]
  - CONSTIPATION [None]
  - DECREASED APPETITE [None]
  - DRY SKIN [None]
  - DYSGEUSIA [None]
  - DYSPHONIA [None]
  - DYSURIA [None]
  - ERYTHEMA [None]
  - HAEMATURIA [None]
  - HYPERTENSION [None]
  - PALMAR-PLANTAR ERYTHRODYSAESTHESIA SYNDROME [None]
  - PRURITUS [None]
  - SKIN LESION [None]
  - STOMATITIS [None]
  - VISION BLURRED [None]
  - WEIGHT DECREASED [None]
  - WHEELCHAIR USER [None]
